FAERS Safety Report 7671718-2 (Version None)
Quarter: 2011Q3

REPORT INFORMATION
  Report Type: 
  Country: None (occurrence: None)
  Receive Date: 20110809
  Receipt Date: 20110803
  Transmission Date: 20111222
  Serious: Yes (Hospitalization, Other)
  Sender: FDA-Public Use
  Company Number: US-B.I. PHARMACEUTICALS,INC./RIDGEFIELD-2011-BP-15434BP

PATIENT
  Age: 85 Year
  Sex: Female
  Weight: 63.96 kg

DRUGS (11)
  1. VESICARE [Concomitant]
     Indication: INCONTINENCE
  2. ZETORETIC [Concomitant]
     Indication: HYPERTENSION
  3. PRADAXA [Suspect]
     Indication: ATRIAL FIBRILLATION
     Dosage: 300 MG
     Route: 048
     Dates: start: 20110208, end: 20110613
  4. ARICEPT [Concomitant]
     Indication: MEMORY IMPAIRMENT
  5. FOSAMAX [Concomitant]
     Indication: OSTEOPOROSIS
  6. POTASSIUM [Concomitant]
     Indication: SUPPLEMENTATION THERAPY
  7. MOBIC [Concomitant]
     Indication: ARTHRITIS
  8. TENORMIN [Concomitant]
     Indication: HYPERTENSION
  9. LASIX [Concomitant]
     Indication: OEDEMA
  10. VYTORIN [Concomitant]
     Indication: BLOOD CHOLESTEROL INCREASED
  11. CALCIUM CARBONATE [Concomitant]
     Indication: SUPPLEMENTATION THERAPY

REACTIONS (4)
  - HAEMORRHAGE [None]
  - HAEMOGLOBIN DECREASED [None]
  - INTERNATIONAL NORMALISED RATIO INCREASED [None]
  - PROTHROMBIN TIME PROLONGED [None]
